FAERS Safety Report 20091453 (Version 2)
Quarter: 2021Q4

REPORT INFORMATION
  Report Type: Spontaneous
  Country: CN (occurrence: CN)
  Receive Date: 20211119
  Receipt Date: 20211124
  Transmission Date: 20220303
  Serious: Yes (Disabling, Other)
  Sender: FDA-Public Use
  Company Number: CN-009507513-2111CHN004305

PATIENT
  Age: 72 Year
  Sex: Female

DRUGS (1)
  1. CILASTATIN SODIUM\IMIPENEM [Suspect]
     Active Substance: CILASTATIN SODIUM\IMIPENEM
     Indication: Pneumonia
     Dosage: 0.5 GRAM, Q6H
     Route: 041
     Dates: start: 20211024, end: 20211027

REACTIONS (5)
  - Seizure [Recovering/Resolving]
  - Loss of consciousness [Unknown]
  - Gaze palsy [Unknown]
  - Diarrhoea [Recovering/Resolving]
  - Mental disorder [Unknown]

NARRATIVE: CASE EVENT DATE: 20211026
